FAERS Safety Report 17036751 (Version 1)
Quarter: 2019Q4

REPORT INFORMATION
  Report Type: Spontaneous
  Country: US (occurrence: US)
  Receive Date: 20191015
  Receipt Date: 20191015
  Transmission Date: 20200122
  Serious: Yes (Hospitalization)
  Sender: FDA-Public Use
  Company Number: None

PATIENT
  Age: 68 Year
  Sex: Male
  Weight: 93.89 kg

DRUGS (1)
  1. PIPERACILLIN/TAZOBACTAM [Suspect]
     Active Substance: PIPERACILLIN SODIUM\TAZOBACTAM SODIUM
     Indication: CELLULITIS
     Dosage: ?          OTHER DOSE:MG;?
     Route: 042
     Dates: start: 20190722, end: 20190722

REACTIONS (4)
  - Cough [None]
  - Anaphylactic reaction [None]
  - Intestinal obstruction [None]
  - Hepatic encephalopathy [None]

NARRATIVE: CASE EVENT DATE: 20190722
